FAERS Safety Report 8761924 (Version 1)
Quarter: 2012Q4

REPORT INFORMATION
  Report Type: 
  Country: US (occurrence: US)
  Receive Date: 20120830
  Receipt Date: 20120830
  Transmission Date: 20130627
  Serious: Yes (Other)
  Sender: FDA-Public Use
  Company Number: CHPA2012US018773

PATIENT
  Age: 87 Year
  Sex: Female

DRUGS (2)
  1. BENEFIBER W/ WHEAT DEXTRIN [Suspect]
     Indication: NUTRITIONAL SUPPORT
     Dosage: 1 TSP, QD
     Route: 048
     Dates: start: 2002
  2. DULCOLAX [Concomitant]
     Indication: FAECES HARD
     Dosage: Unk,  Unk

REACTIONS (2)
  - Cerebrovascular accident [Not Recovered/Not Resolved]
  - Underdose [Unknown]
